FAERS Safety Report 24734747 (Version 1)
Quarter: 2024Q4

REPORT INFORMATION
  Report Type: Spontaneous
  Country: US (occurrence: US)
  Receive Date: 20241214
  Receipt Date: 20241214
  Transmission Date: 20250114
  Serious: Yes (Other)
  Sender: ASTELLAS
  Company Number: US-ASTELLAS-2024-AER-023832

PATIENT
  Age: 81 Year
  Sex: Male

DRUGS (3)
  1. IZERVAY [Suspect]
     Active Substance: AVACINCAPTAD PEGOL SODIUM
     Indication: Dry age-related macular degeneration
     Dosage: IZERVAY 2 MG 1 ML OF 20 MG/ML RIGHT EYE (OD)
     Dates: start: 20241118, end: 20241118
  2. Betadine flesh [Concomitant]
     Indication: Product used for unknown indication
     Route: 065
  3. OCUVITE [Concomitant]
     Active Substance: VITAMINS
     Indication: Product used for unknown indication
     Route: 065

REACTIONS (1)
  - Endophthalmitis [Unknown]
